FAERS Safety Report 23047128 (Version 2)
Quarter: 2023Q4

REPORT INFORMATION
  Report Type: Spontaneous
  Country: US (occurrence: US)
  Receive Date: 20231009
  Receipt Date: 20231124
  Transmission Date: 20240110
  Serious: Yes (Other)
  Sender: FDA-Public Use
  Company Number: US-BEH-2023164123

PATIENT
  Sex: Male

DRUGS (6)
  1. IDELVION [Suspect]
     Active Substance: COAGULATION FACTOR IX RECOMBINANT HUMAN
     Indication: Factor IX deficiency
     Dosage: 1900 INTERNATIONAL UNIT,(1710-2090 IU) QW
     Route: 042
     Dates: start: 202305
  2. IDELVION [Suspect]
     Active Substance: COAGULATION FACTOR IX RECOMBINANT HUMAN
     Indication: Factor IX deficiency
     Dosage: 1900 INTERNATIONAL UNIT,(1710-2090 IU) QW
     Route: 042
     Dates: start: 202305
  3. IDELVION [Suspect]
     Active Substance: COAGULATION FACTOR IX RECOMBINANT HUMAN
     Indication: Prophylaxis
     Dosage: 1900 INTERNATIONAL UNIT,(1710-2090 IU) EVERY 48 HOURS FOR MINOR BLEEDS
     Route: 042
     Dates: start: 202305
  4. IDELVION [Suspect]
     Active Substance: COAGULATION FACTOR IX RECOMBINANT HUMAN
     Indication: Prophylaxis
     Dosage: 1900 INTERNATIONAL UNIT,(1710-2090 IU) EVERY 48 HOURS FOR MINOR BLEEDS
     Route: 042
     Dates: start: 202305
  5. IDELVION [Suspect]
     Active Substance: COAGULATION FACTOR IX RECOMBINANT HUMAN
     Dosage: 3600 INTERNATIONAL UNIT (3240-3960IU), PRN FOR HEAD INJURY OR MAJOR BLEED
     Route: 042
     Dates: start: 202305
  6. IDELVION [Suspect]
     Active Substance: COAGULATION FACTOR IX RECOMBINANT HUMAN
     Dosage: 3600 INTERNATIONAL UNIT (3240-3960IU), PRN FOR HEAD INJURY OR MAJOR BLEED
     Route: 042
     Dates: start: 202305

REACTIONS (2)
  - Haemorrhage [Unknown]
  - Haemorrhage [Recovered/Resolved]

NARRATIVE: CASE EVENT DATE: 20230101
